FAERS Safety Report 19912754 (Version 1)
Quarter: 2021Q4

REPORT INFORMATION
  Report Type: Spontaneous
  Country: US (occurrence: US)
  Receive Date: 20211004
  Receipt Date: 20211004
  Transmission Date: 20220303
  Serious: Yes (unspecified)
  Sender: FDA-Public Use
  Company Number: None

PATIENT
  Age: 59 Year
  Sex: Female
  Weight: 81 kg

DRUGS (14)
  1. MONTELUKAST [Suspect]
     Active Substance: MONTELUKAST SODIUM
     Indication: Asthma
     Dosage: ?          QUANTITY:1 TABLET(S);
     Route: 048
     Dates: start: 20210514, end: 20210909
  2. MONTELUKAST [Suspect]
     Active Substance: MONTELUKAST SODIUM
     Indication: Multiple allergies
  3. NEBULIZER TREATMENTS [Concomitant]
  4. ALBUTEROL [Concomitant]
     Active Substance: ALBUTEROL
  5. XANAX [Concomitant]
     Active Substance: ALPRAZOLAM
  6. ASPIRIN [Concomitant]
     Active Substance: ASPIRIN
  7. WIXELA INHUB [Concomitant]
     Active Substance: FLUTICASONE PROPIONATE\SALMETEROL XINAFOATE
  8. HYDROCODONE [Concomitant]
     Active Substance: HYDROCODONE
  9. LEVALBUTEROL [Concomitant]
     Active Substance: LEVALBUTEROL
  10. LEVOTHYROXINE [Concomitant]
     Active Substance: LEVOTHYROXINE
  11. METHOCARBAMOL [Concomitant]
     Active Substance: METHOCARBAMOL
  12. ZYRTEC [Concomitant]
     Active Substance: CETIRIZINE HYDROCHLORIDE
  13. BVITAMINS WITH VITAMIN C [Concomitant]
  14. ALTERNATE WITH MULTIVITAMINS [Concomitant]

REACTIONS (14)
  - Nightmare [None]
  - Asthma [None]
  - Anger [None]
  - Poor quality sleep [None]
  - Breath sounds abnormal [None]
  - Psychiatric symptom [None]
  - Panic reaction [None]
  - Crying [None]
  - Panic attack [None]
  - Anger [None]
  - Violence-related symptom [None]
  - Tic [None]
  - Memory impairment [None]
  - Drug ineffective [None]

NARRATIVE: CASE EVENT DATE: 20210910
